FAERS Safety Report 20820642 (Version 1)
Quarter: 2022Q2

REPORT INFORMATION
  Report Type: Spontaneous
  Country: US (occurrence: None)
  Receive Date: 20220512
  Receipt Date: 20220512
  Transmission Date: 20220720
  Serious: No
  Sender: FDA-Public Use
  Company Number: None

PATIENT

DRUGS (1)
  1. BEBTELOVIMAB [Suspect]
     Active Substance: BEBTELOVIMAB

REACTIONS (7)
  - Seizure like phenomena [None]
  - Unresponsive to stimuli [None]
  - Opisthotonus [None]
  - Eye movement disorder [None]
  - Muscle rigidity [None]
  - Hypotension [None]
  - Feeling abnormal [None]
